FAERS Safety Report 7564901-8 (Version None)
Quarter: 2011Q2

REPORT INFORMATION
  Report Type: 
  Country: None (occurrence: None)
  Receive Date: 20110622
  Receipt Date: 20110318
  Transmission Date: 20111010
  Serious: Yes (Other)
  Sender: FDA-Public Use
  Company Number: US-MYLANLABS-2011S1002712

PATIENT
  Age: 45 Year
  Sex: Female

DRUGS (3)
  1. CLOZAPINE [Suspect]
     Dates: end: 20110309
  2. CLOZAPINE [Suspect]
  3. BUSPIRONE HCL [Concomitant]

REACTIONS (2)
  - GRANULOCYTOPENIA [None]
  - LEUKOPENIA [None]
